FAERS Safety Report 7191722-0 (Version None)
Quarter: 2010Q4

REPORT INFORMATION
  Report Type: 
  Country: None (occurrence: None)
  Receive Date: 20101223
  Receipt Date: 20101216
  Transmission Date: 20110411
  Serious: Yes (Hospitalization)
  Sender: FDA-Public Use
  Company Number: US-SANOFI-AVENTIS-2010SA069204

PATIENT
  Age: 67 Year
  Sex: Male
  Weight: 84.5 kg

DRUGS (8)
  1. MULTAQ [Suspect]
     Route: 048
     Dates: start: 20101022, end: 20101022
  2. TOPROL-XL [Concomitant]
  3. DIOVAN [Concomitant]
  4. WARFARIN SODIUM [Concomitant]
  5. ASPIRIN [Concomitant]
     Indication: CORONARY ARTERY DISEASE
  6. FUROSEMIDE [Concomitant]
  7. SPIRIVA [Concomitant]
     Indication: CHRONIC OBSTRUCTIVE PULMONARY DISEASE
  8. ADVAIR [Concomitant]
     Indication: CHRONIC OBSTRUCTIVE PULMONARY DISEASE

REACTIONS (1)
  - VENTRICULAR TACHYCARDIA [None]
